FAERS Safety Report 9671999 (Version 1)
Quarter: 2013Q4

REPORT INFORMATION
  Report Type: Spontaneous
  Country: US (occurrence: None)
  Receive Date: 20131105
  Receipt Date: 20131105
  Transmission Date: 20140711
  Serious: Yes (Other)
  Sender: FDA-Public Use
  Company Number: None

PATIENT
  Sex: Female
  Weight: 58.06 kg

DRUGS (1)
  1. HYDROXYUREA [Suspect]

REACTIONS (7)
  - Red blood cell count decreased [None]
  - Haematocrit decreased [None]
  - Haemoglobin decreased [None]
  - Product quality issue [None]
  - Asthenia [None]
  - Blood count abnormal [None]
  - Product substitution issue [None]
